FAERS Safety Report 9862140 (Version 1)
Quarter: 2014Q1

REPORT INFORMATION
  Report Type: Report from Study
  Country: DE (occurrence: DE)
  Receive Date: 20140203
  Receipt Date: 20140203
  Transmission Date: 20141002
  Serious: Yes (Other)
  Sender: FDA-Public Use
  Company Number: DE-JNJFOC-20140116953

PATIENT
  Age: 62 Year
  Sex: Male

DRUGS (5)
  1. SIMPONI [Suspect]
     Indication: RHEUMATOID ARTHRITIS
     Route: 058
     Dates: end: 20131020
  2. SIMPONI [Suspect]
     Indication: RHEUMATOID ARTHRITIS
     Route: 058
     Dates: start: 201305
  3. METHOTREXATE [Concomitant]
     Route: 065
     Dates: start: 200712, end: 20131020
  4. ASS [Concomitant]
     Route: 065
     Dates: start: 201201
  5. GABAPENTIN [Concomitant]
     Dosage: DOSE: 300
     Route: 065
     Dates: start: 201201

REACTIONS (1)
  - Herpes zoster [Not Recovered/Not Resolved]
